FAERS Safety Report 15484014 (Version 2)
Quarter: 2020Q3

REPORT INFORMATION
  Report Type: Report from Study
  Country: US (occurrence: US)
  Receive Date: 20181010
  Receipt Date: 20181204
  Transmission Date: 20201105
  Serious: Yes (Hospitalization)
  Sender: FDA-Public Use
  Company Number: US-ASTRAZENECA-2018SF28924

PATIENT
  Age: 17572 Day
  Sex: Female
  Weight: 63 kg

DRUGS (17)
  1. TRAMADOL. [Concomitant]
     Active Substance: TRAMADOL
     Route: 065
  2. LORAZEPAM. [Concomitant]
     Active Substance: LORAZEPAM
     Route: 065
  3. IBUPROFEN. [Concomitant]
     Active Substance: IBUPROFEN
     Route: 065
  4. ACETAZOLAMIDE. [Concomitant]
     Active Substance: ACETAZOLAMIDE
     Route: 065
  5. FAMOTIDINE. [Concomitant]
     Active Substance: FAMOTIDINE
     Route: 065
  6. OMEPRAZOLE. [Concomitant]
     Active Substance: OMEPRAZOLE
     Route: 065
  7. VANCOMYCIN [Concomitant]
     Active Substance: VANCOMYCIN
     Route: 065
  8. PANCRELIPASE. [Concomitant]
     Active Substance: PANCRELIPASE
     Route: 065
  9. PROCHLORPERAZINE. [Concomitant]
     Active Substance: PROCHLORPERAZINE
     Route: 065
  10. TREMELIMUMAB. [Suspect]
     Active Substance: TREMELIMUMAB
     Indication: CHOLANGIOCARCINOMA
     Route: 042
     Dates: start: 20180914, end: 20181019
  11. URSODIOL. [Concomitant]
     Active Substance: URSODIOL
     Route: 065
  12. MEDI4736 [Suspect]
     Active Substance: DURVALUMAB
     Indication: CHOLANGIOCARCINOMA
     Route: 042
     Dates: start: 20180914, end: 20181019
  13. GABAPENTIN. [Concomitant]
     Active Substance: GABAPENTIN
     Route: 065
  14. DIPHENOXYLATE ATROPINE [Concomitant]
     Route: 065
  15. LIPASE?PROTEASE?AMYLASE [Concomitant]
     Route: 065
  16. MORPHINE [Concomitant]
     Active Substance: MORPHINE
     Route: 065
  17. THERAPEUTIC MULTIVITAMIN TABLET [Concomitant]
     Route: 065

REACTIONS (3)
  - Abdominal pain [Unknown]
  - Enterocolitis infectious [Unknown]
  - Pyrexia [Unknown]

NARRATIVE: CASE EVENT DATE: 20180929
